FAERS Safety Report 11273470 (Version 1)
Quarter: 2015Q3

REPORT INFORMATION
  Report Type: Spontaneous
  Country: US (occurrence: None)
  Receive Date: 20150714
  Receipt Date: 20150714
  Transmission Date: 20151125
  Serious: No
  Sender: FDA-Public Use
  Company Number: None

PATIENT
  Age: 62 Year
  Sex: Male

DRUGS (9)
  1. OMEPRAZOLE. [Concomitant]
     Active Substance: OMEPRAZOLE
  2. ZYTIGA [Suspect]
     Active Substance: ABIRATERONE ACETATE
     Indication: NEOPLASM MALIGNANT
     Dosage: 1000MG, QD, PO
     Route: 048
     Dates: start: 20150512
  3. ENOXAPARIN [Concomitant]
     Active Substance: ENOXAPARIN
  4. BICALUTAMIDE. [Concomitant]
     Active Substance: BICALUTAMIDE
  5. HYDROCODONE/APAP [Concomitant]
     Active Substance: ACETAMINOPHEN\HYDROCODONE BITARTRATE
  6. LUPRON [Concomitant]
     Active Substance: LEUPROLIDE ACETATE
  7. PREDNISONE 5MG [Suspect]
     Active Substance: PREDNISONE
     Indication: NEOPLASM MALIGNANT
     Dosage: 5MG, BID, PO
     Route: 048
     Dates: start: 20150512
  8. ATORVASTATIN [Concomitant]
     Active Substance: ATORVASTATIN
  9. WARFARIN [Concomitant]
     Active Substance: WARFARIN

REACTIONS (1)
  - Bone pain [None]
